FAERS Safety Report 8270574-1 (Version None)
Quarter: 2012Q2

REPORT INFORMATION
  Report Type: 
  Country: None (occurrence: None)
  Receive Date: 20120410
  Receipt Date: 20120330
  Transmission Date: 20120825
  Serious: Yes (Hospitalization)
  Sender: FDA-Public Use
  Company Number: US-BRISTOL-MYERS SQUIBB COMPANY-16490807

PATIENT
  Age: 52 Year
  Sex: Female

DRUGS (3)
  1. LEXAPRO [Suspect]
     Dosage: DOSE:5MG
  2. VITAMIN TAB [Concomitant]
  3. ABILIFY [Suspect]
     Indication: DEPRESSION
     Dosage: INITIALLY GIVEN 5 MG THEN REDUCED TO 2.5MG
     Dates: start: 20120323

REACTIONS (2)
  - LOSS OF CONSCIOUSNESS [None]
  - ORTHOSTATIC HYPOTENSION [None]
